FAERS Safety Report 19420078 (Version 1)
Quarter: 2021Q2

REPORT INFORMATION
  Report Type: Spontaneous
  Country: CA (occurrence: CA)
  Receive Date: 20210615
  Receipt Date: 20210615
  Transmission Date: 20210717
  Serious: Yes (Hospitalization, Other)
  Sender: FDA-Public Use
  Company Number: CA-EAGLE PHARMACEUTICALS, INC.-CA-2021EAG000080

PATIENT
  Age: 48 Year
  Sex: Male

DRUGS (5)
  1. ETOPOSIDE. [Concomitant]
     Active Substance: ETOPOSIDE
     Indication: AUTOLOGOUS HAEMATOPOIETIC STEM CELL TRANSPLANT
     Dosage: 100 MG/M2, BID, ON DAYS ?6 TO ?3
     Route: 042
  2. MELPHALAN. [Concomitant]
     Active Substance: MELPHALAN
     Indication: AUTOLOGOUS HAEMATOPOIETIC STEM CELL TRANSPLANT
     Dosage: 140 MG/M2, ON DAYS ?2
     Route: 042
  3. VITAMIN D                          /00107901/ [Concomitant]
     Active Substance: ERGOCALCIFEROL
     Indication: SUPPLEMENTATION THERAPY
     Dosage: UNK
     Route: 065
  4. CYTARABINE. [Concomitant]
     Active Substance: CYTARABINE
     Indication: AUTOLOGOUS HAEMATOPOIETIC STEM CELL TRANSPLANT
     Dosage: 200 MG/M2, BID, ON DAYS ?6 TO ?3
     Route: 042
  5. BENDAMUSTINE HYDROCHLORIDE. [Suspect]
     Active Substance: BENDAMUSTINE HYDROCHLORIDE
     Indication: AUTOLOGOUS HAEMATOPOIETIC STEM CELL TRANSPLANT
     Dosage: 400 MG (200 MG/M2), DAYS ?8 AND ?7
     Route: 042

REACTIONS (6)
  - Mucosal inflammation [Unknown]
  - Nausea [Unknown]
  - Acute kidney injury [Unknown]
  - Odynophagia [Unknown]
  - Nephrogenic diabetes insipidus [Recovered/Resolved]
  - Hypernatraemia [Recovered/Resolved]
